FAERS Safety Report 7542338-5 (Version None)
Quarter: 2011Q2

REPORT INFORMATION
  Report Type: 
  Country: None (occurrence: None)
  Receive Date: 20110606
  Receipt Date: 20110527
  Transmission Date: 20111010
  Serious: Yes (Hospitalization)
  Sender: FDA-Public Use
  Company Number: DKLU1070985

PATIENT
  Age: 8 Year
  Sex: Male

DRUGS (4)
  1. ELSPAR [Suspect]
     Indication: LEUKAEMIA
     Dosage: DAILY,INTRAMUSCULAR
     Route: 030
     Dates: start: 20110511, end: 20110511
  2. ONDANSETR (ONDANSETRON) [Concomitant]
  3. VINCRISTINE SULFATE [Concomitant]
  4. DEXAMETASONA (DEXAMETASONA) [Concomitant]

REACTIONS (3)
  - HYPERAEMIA [None]
  - RASH [None]
  - SENSORY DISTURBANCE [None]
